FAERS Safety Report 10597924 (Version 1)
Quarter: 2014Q4

REPORT INFORMATION
  Report Type: Spontaneous
  Country: US (occurrence: US)
  Receive Date: 20141121
  Receipt Date: 20141121
  Transmission Date: 20150529
  Serious: Yes (Hospitalization)
  Sender: FDA-Public Use
  Company Number: US-JNJFOC-20141109889

PATIENT
  Age: 56 Year
  Sex: Male
  Weight: 133.81 kg

DRUGS (3)
  1. ENOXAPARIN [Suspect]
     Active Substance: ENOXAPARIN
     Indication: THROMBOSIS
     Dosage: 60 MG AND 80 MG (PATIENT REPORTED THAT HE WAS USING BOTH STRENGTHS)
     Route: 058
     Dates: start: 201410, end: 201410
  2. XARELTO [Suspect]
     Active Substance: RIVAROXABAN
     Indication: PRODUCT USED FOR UNKNOWN INDICATION
     Route: 048
     Dates: end: 2014
  3. WARFARIN [Suspect]
     Active Substance: WARFARIN
     Indication: PRODUCT USED FOR UNKNOWN INDICATION
     Route: 065
     Dates: start: 201410, end: 201410

REACTIONS (5)
  - Bronchitis [Unknown]
  - Thrombosis [Unknown]
  - Ulcer haemorrhage [Recovered/Resolved]
  - Dizziness [Unknown]
  - Cardiac failure congestive [Unknown]

NARRATIVE: CASE EVENT DATE: 2014
